FAERS Safety Report 8273190-0 (Version None)
Quarter: 2012Q2

REPORT INFORMATION
  Report Type: 
  Country: None (occurrence: None)
  Receive Date: 20120411
  Receipt Date: 20120404
  Transmission Date: 20120825
  Serious: Yes (Death)
  Sender: FDA-Public Use
  Company Number: US-NAPPMUNDI-USA-2012-0085031

PATIENT
  Sex: Female

DRUGS (1)
  1. OXYCONTIN [Suspect]
     Indication: PAIN
     Route: 048

REACTIONS (4)
  - NEOPLASM MALIGNANT [None]
  - DYSPHAGIA [None]
  - HYPERSOMNIA [None]
  - WRONG TECHNIQUE IN DRUG USAGE PROCESS [None]
